FAERS Safety Report 4551459-0 (Version None)
Quarter: 2005Q1

REPORT INFORMATION
  Report Type: 
  Country: None (occurrence: None)
  Receive Date: 20050113
  Receipt Date: 20040818
  Transmission Date: 20050727
  Serious: Yes (Death)
  Sender: FDA-Public Use
  Company Number: US-NOVOPROD-238728

PATIENT
  Age: 20 Year
  Sex: Male
  Weight: 108 kg

DRUGS (3)
  1. NOVOSEVEN [Suspect]
     Indication: DISSEMINATED INTRAVASCULAR COAGULATION
     Dosage: 2.4 MG, SINGLE
     Route: 042
     Dates: start: 20040720, end: 20040720
  2. NOVOSEVEN [Suspect]
     Dosage: 4.8 MG, SINGLE
     Route: 042
     Dates: start: 20040721, end: 20040721
  3. FRESH FROZEN PLASMA [Concomitant]
     Indication: DISSEMINATED INTRAVASCULAR COAGULATION

REACTIONS (1)
  - HAEMORRHAGE INTRACRANIAL [None]
